FAERS Safety Report 7977842-9 (Version None)
Quarter: 2011Q4

REPORT INFORMATION
  Report Type: 
  Country: None (occurrence: None)
  Receive Date: 20111214
  Receipt Date: 20111202
  Transmission Date: 20120403
  Serious: No
  Sender: FDA-Public Use
  Company Number: US-AMGEN-USASP2011057632

PATIENT
  Age: 58 Year
  Sex: Male
  Weight: 92.971 kg

DRUGS (1)
  1. ENBREL [Suspect]
     Indication: PSORIATIC ARTHROPATHY
     Dosage: 50 MG, QWK
     Route: 058
     Dates: start: 20110630

REACTIONS (3)
  - PSORIATIC ARTHROPATHY [None]
  - MOBILITY DECREASED [None]
  - GAIT DISTURBANCE [None]
